FAERS Safety Report 14067279 (Version 1)
Quarter: 2017Q4

REPORT INFORMATION
  Report Type: Spontaneous
  Country: US (occurrence: US)
  Receive Date: 20171010
  Receipt Date: 20171010
  Transmission Date: 20180321
  Serious: Yes (Life-Threatening, Hospitalization)
  Sender: FDA-Public Use
  Company Number: US-SERB S.A.S.-2029375

PATIENT
  Age: 47 Year
  Sex: Male

DRUGS (8)
  1. KETAMINE HYDROCHLORIDE. [Concomitant]
     Active Substance: KETAMINE HYDROCHLORIDE
     Route: 040
  2. ASCORBIC ACID. [Concomitant]
     Active Substance: ASCORBIC ACID
  3. VASOPRESSIN. [Concomitant]
     Active Substance: VASOPRESSIN
  4. CYANOKIT [Suspect]
     Active Substance: HYDROXOCOBALAMIN
     Indication: BLOOD CYANIDE INCREASED
     Route: 042
  5. FENTANYL. [Concomitant]
     Active Substance: FENTANYL
     Route: 040
  6. ALBUMIN (HUMAN) [Concomitant]
     Active Substance: ALBUMIN HUMAN
  7. LACTATED RINGERS SOLUTION [Concomitant]
     Active Substance: CALCIUM CHLORIDE\POTASSIUM CHLORIDE\SODIUM CHLORIDE\SODIUM LACTATE
  8. BACITRACIN. [Concomitant]
     Active Substance: BACITRACIN

REACTIONS (3)
  - Systolic hypertension [Recovered/Resolved]
  - Methaemoglobinaemia [Recovered/Resolved]
  - Bradycardia [Recovered/Resolved]
